FAERS Safety Report 5720604-3 (Version None)
Quarter: 2008Q2

REPORT INFORMATION
  Report Type: 
  Country: None (occurrence: None)
  Receive Date: 20080425
  Receipt Date: 20080425
  Transmission Date: 20081010
  Serious: Yes (Hospitalization)
  Sender: FDA-Public Use
  Company Number: None

PATIENT
  Age: 58 Month
  Sex: Male

DRUGS (1)
  1. BUPIVACAINE [Suspect]
     Indication: SKIN NEOPLASM EXCISION
     Dosage: 30ML VIAL 1-3ML DOSE ONCE OTHER SINGLE DOSE TODAY
     Route: 050
     Dates: start: 20040424, end: 20080424

REACTIONS (1)
  - DRUG INEFFECTIVE [None]
